FAERS Safety Report 7363640-6 (Version None)
Quarter: 2011Q1

REPORT INFORMATION
  Report Type: 
  Country: None (occurrence: None)
  Receive Date: 20110321
  Receipt Date: 20110308
  Transmission Date: 20110831
  Serious: Yes (Other)
  Sender: FDA-Public Use
  Company Number: FR-JNJFOC-2011003470

PATIENT
  Sex: Female
  Weight: 59 kg

DRUGS (3)
  1. ALOSTIL 5% [Suspect]
     Indication: PRODUCT USED FOR UNKNOWN INDICATION
     Route: 061
  2. ALOSTIL 5% [Suspect]
     Route: 061
  3. EFFERALGAN [Concomitant]
     Indication: SPINAL OSTEOARTHRITIS
     Route: 048

REACTIONS (4)
  - CELL DEATH [None]
  - ASTHENIA [None]
  - ANTINUCLEAR ANTIBODY POSITIVE [None]
  - WRONG DRUG ADMINISTERED [None]
